FAERS Safety Report 7529858-4 (Version None)
Quarter: 2011Q2

REPORT INFORMATION
  Report Type: 
  Country: None (occurrence: None)
  Receive Date: 20110607
  Receipt Date: 20110321
  Transmission Date: 20111010
  Serious: Yes (Hospitalization, Other)
  Sender: FDA-Public Use
  Company Number: US-BAYER-2010-002140

PATIENT
  Age: 32 Year
  Sex: Female
  Weight: 86.168 kg

DRUGS (13)
  1. LO/OVRAL [Concomitant]
     Indication: CONTRACEPTION
     Dosage: UNK
     Dates: start: 20080101, end: 20080801
  2. MULTI-VITAMIN [Concomitant]
  3. YAZ [Suspect]
     Indication: PREMENSTRUAL SYNDROME
  4. WELLBUTRIN [Concomitant]
     Indication: MOOD SWINGS
     Dosage: UNK
     Dates: start: 20050101
  5. FIORICET [Concomitant]
     Indication: HEADACHE
     Dosage: UNK
     Dates: start: 20080301, end: 20080601
  6. AMITRIPTYLINE HCL [Concomitant]
     Dosage: UNK
     Dates: start: 20080101
  7. ASPIRIN [Concomitant]
     Dosage: UNK
     Dates: start: 20080301
  8. TRIVORA-21 [Concomitant]
     Dosage: UNK
     Dates: start: 20070201, end: 20070901
  9. FLUOXETINE HCL [Concomitant]
     Dosage: UNK
     Dates: start: 20090101
  10. YAZ [Suspect]
     Indication: ORAL CONTRACEPTION
     Dosage: UNK
     Dates: start: 20060101, end: 20070101
  11. LO/OVRAL [Concomitant]
     Dosage: UNK
     Dates: start: 19990101, end: 20070101
  12. METOPROLOL SUCCINATE [Concomitant]
     Dosage: UNK
     Dates: start: 20080101
  13. ALPRAZOLAM [Concomitant]
     Dosage: UNK UNK, PRN

REACTIONS (3)
  - ANEURYSM [None]
  - ARRHYTHMIA [None]
  - CEREBROVASCULAR ACCIDENT [None]
